FAERS Safety Report 7473897-9 (Version None)
Quarter: 2011Q2

REPORT INFORMATION
  Report Type: 
  Country: None (occurrence: None)
  Receive Date: 20110511
  Receipt Date: 20110505
  Transmission Date: 20111010
  Serious: Yes (Hospitalization)
  Sender: FDA-Public Use
  Company Number: US-CEPHALON-2011002232

PATIENT
  Sex: Male

DRUGS (3)
  1. FENTORA [Suspect]
     Indication: BREAKTHROUGH PAIN
     Route: 002
  2. FENTORA [Suspect]
     Route: 002
  3. FENTANYL [Concomitant]
     Route: 062

REACTIONS (2)
  - DRUG TOLERANCE [None]
  - GROIN PAIN [None]
